FAERS Safety Report 18279777 (Version 1)
Quarter: 2020Q3

REPORT INFORMATION
  Report Type: Spontaneous
  Country: FR (occurrence: FR)
  Receive Date: 20200917
  Receipt Date: 20200917
  Transmission Date: 20201103
  Serious: Yes (Hospitalization)
  Sender: FDA-Public Use
  Company Number: FR-MYLANLABS-2020M1078656

PATIENT
  Age: 50 Year
  Sex: Female
  Weight: 75 kg

DRUGS (3)
  1. IBRANCE [Suspect]
     Active Substance: PALBOCICLIB
     Indication: BREAST CANCER
     Dosage: 1 DOSAGE FORM, CYCLE (CYCLE DE 21 JOURS ET 7 JOURS DE REPOS.)
     Route: 048
     Dates: start: 20200623, end: 20200810
  2. LETROZOLE. [Suspect]
     Active Substance: LETROZOLE
     Indication: BREAST CANCER
     Dosage: 2.5 MILLIGRAM, QD
     Route: 048
     Dates: start: 20200623, end: 20200810
  3. DECAPEPTYL                         /00486501/ [Suspect]
     Active Substance: GONADORELIN
     Indication: BREAST CANCER
     Dosage: 1 DOSAGE FORM, Q3MONTHS
     Route: 058
     Dates: start: 20200623

REACTIONS (3)
  - Vertigo positional [Recovering/Resolving]
  - Dysaesthesia [Recovered/Resolved]
  - Headache [Recovered/Resolved]

NARRATIVE: CASE EVENT DATE: 20200715
